FAERS Safety Report 20000558 (Version 2)
Quarter: 2021Q4

REPORT INFORMATION
  Report Type: Spontaneous
  Country: US (occurrence: US)
  Receive Date: 20211026
  Receipt Date: 20211104
  Transmission Date: 20220304
  Serious: Yes (Hospitalization, Other)
  Sender: FDA-Public Use
  Company Number: US-SA-2021SA348218

PATIENT
  Age: 16 Year
  Sex: Male

DRUGS (6)
  1. INSULIN GLARGINE [Suspect]
     Active Substance: INSULIN GLARGINE
     Indication: Type 1 diabetes mellitus
     Dosage: EACH NIGHT
  2. INSULIN LISPRO [Suspect]
     Active Substance: INSULIN LISPRO
     Indication: Type 1 diabetes mellitus
     Dosage: WITH MEALS
  3. DEXTROSE [Suspect]
     Active Substance: DEXTROSE
     Indication: Hypoglycaemia
     Dosage: MORE THAN 20 GLUCOSE TABLETS
     Route: 048
  4. SERTRALINE [Concomitant]
     Active Substance: SERTRALINE HYDROCHLORIDE
     Dosage: WITH MEALS
  5. GUANFACINE [Concomitant]
     Active Substance: GUANFACINE
     Dosage: 1 MG IN THE MORNING AND 3 MG AT NIGHT
  6. MELATONIN [Concomitant]
     Active Substance: MELATONIN
     Dosage: 3 MG, HS

REACTIONS (9)
  - Hepatitis acute [Recovered/Resolved]
  - Overdose [Recovered/Resolved]
  - Abdominal discomfort [Recovered/Resolved]
  - Nausea [Recovered/Resolved]
  - Vomiting [Recovered/Resolved]
  - Hypoglycaemia [Recovered/Resolved]
  - Abdominal tenderness [Recovered/Resolved]
  - Abdominal pain [Recovered/Resolved]
  - Glycogen storage disease type VIII [Recovered/Resolved]
